FAERS Safety Report 6918581-2 (Version None)
Quarter: 2010Q3

REPORT INFORMATION
  Report Type: 
  Country: None (occurrence: None)
  Receive Date: 20100811
  Receipt Date: 20100804
  Transmission Date: 20110219
  Serious: Yes (Death, Other)
  Sender: FDA-Public Use
  Company Number: US-BAYER-201035309GPV

PATIENT
  Age: 51 Year
  Sex: Male

DRUGS (2)
  1. ALEMTUZUMAB [Suspect]
     Indication: RENAL TRANSPLANT
  2. SOLU-MEDROL [Concomitant]
     Indication: RENAL TRANSPLANT

REACTIONS (8)
  - AGITATION [None]
  - DISSEMINATED INTRAVASCULAR COAGULATION [None]
  - HAEMOGLOBIN DECREASED [None]
  - HYPOTENSION [None]
  - LACTIC ACIDOSIS [None]
  - METABOLIC ACIDOSIS [None]
  - POST PROCEDURAL HAEMORRHAGE [None]
  - SHOCK HAEMORRHAGIC [None]
